FAERS Safety Report 5657192-6 (Version None)
Quarter: 2008Q1

REPORT INFORMATION
  Report Type: 
  Country: None (occurrence: None)
  Receive Date: 20080310
  Receipt Date: 20080304
  Transmission Date: 20080703
  Serious: Yes (Hospitalization)
  Sender: FDA-Public Use
  Company Number: CZ-BRISTOL-MYERS SQUIBB COMPANY-14034698

PATIENT
  Age: 73 Year
  Sex: Female

DRUGS (5)
  1. SPRYCEL [Suspect]
     Indication: CHRONIC MYELOID LEUKAEMIA
     Dosage: 17APR07,70MG/D;24APR07,140MG/D REDUCED TO 70MG.15AUG07 INCREASED TO 100MG.INTERRUPTED ON 17DEC07
     Route: 048
     Dates: start: 20070817, end: 20071217
  2. FOSINOPRIL SODIUM [Suspect]
  3. PURINOL [Suspect]
     Dates: start: 20071001
  4. HYDROCHLOROTHIAZIDE [Suspect]
  5. BETEXA [Suspect]

REACTIONS (5)
  - ACUTE RESPIRATORY FAILURE [None]
  - CARDIAC FAILURE ACUTE [None]
  - NAUSEA [None]
  - PLEURAL EFFUSION [None]
  - VOMITING [None]
